FAERS Safety Report 7994240-2 (Version None)
Quarter: 2011Q4

REPORT INFORMATION
  Report Type: 
  Country: None (occurrence: None)
  Receive Date: 20111220
  Receipt Date: 20111208
  Transmission Date: 20120403
  Serious: Yes (Hospitalization)
  Sender: FDA-Public Use
  Company Number: US-JNJFOC-20111203973

PATIENT
  Sex: Male
  Weight: 63.5 kg

DRUGS (1)
  1. REMICADE [Suspect]
     Indication: RHEUMATOID ARTHRITIS
     Route: 042
     Dates: start: 20050101, end: 20111001

REACTIONS (7)
  - MEMORY IMPAIRMENT [None]
  - MYOCARDIAL INFARCTION [None]
  - MENTAL IMPAIRMENT [None]
  - LOSS OF CONSCIOUSNESS [None]
  - CONCUSSION [None]
  - BODY HEIGHT DECREASED [None]
  - FALL [None]
